APPROVED DRUG PRODUCT: CLINDAMYCIN HYDROCHLORIDE
Active Ingredient: CLINDAMYCIN HYDROCHLORIDE
Strength: EQ 150MG BASE
Dosage Form/Route: CAPSULE;ORAL
Application: A063083 | Product #001
Applicant: WATSON LABORATORIES INC
Approved: Jul 31, 1991 | RLD: No | RS: No | Type: DISCN